FAERS Safety Report 8251935-3 (Version None)
Quarter: 2012Q2

REPORT INFORMATION
  Report Type: 
  Country: None (occurrence: None)
  Receive Date: 20120402
  Receipt Date: 20120224
  Transmission Date: 20120825
  Serious: Yes (Death, Other)
  Sender: FDA-Public Use
  Company Number: GB-CELGENEUS-167-21880-12020478

PATIENT
  Age: 65 Year
  Sex: Female
  Weight: 49.1 kg

DRUGS (8)
  1. DEXTROMETHORPHAN HYDROBROMIDE [Concomitant]
     Indication: MULTIPLE MYELOMA
     Route: 065
     Dates: start: 20030101
  2. REVLIMID [Suspect]
     Indication: MULTIPLE MYELOMA
     Dosage: 10 MILLIGRAM
     Route: 048
     Dates: start: 20101006, end: 20110608
  3. VELCADE [Concomitant]
     Indication: MULTIPLE MYELOMA
     Route: 065
     Dates: start: 20080601
  4. SODIUM CLODRONATE [Concomitant]
     Indication: OSTEOPENIA
     Route: 048
     Dates: start: 20030217, end: 20111102
  5. DEXAMETHASONE [Concomitant]
     Indication: MULTIPLE MYELOMA
     Route: 065
     Dates: start: 20080601
  6. GUAIFENESIN [Concomitant]
     Indication: MULTIPLE MYELOMA
     Route: 065
     Dates: start: 20030101
  7. REVLIMID [Suspect]
     Dosage: 10 MILLIGRAM
     Route: 048
     Dates: start: 20101006, end: 20110608
  8. PHENYLEPHRINE HCL [Concomitant]
     Indication: MULTIPLE MYELOMA
     Route: 065
     Dates: start: 20030101

REACTIONS (2)
  - PANCREATIC CARCINOMA [None]
  - MYELODYSPLASTIC SYNDROME [None]
